FAERS Safety Report 25918177 (Version 1)
Quarter: 2025Q4

REPORT INFORMATION
  Report Type: Spontaneous
  Country: EU (occurrence: EU)
  Receive Date: 20251014
  Receipt Date: 20251014
  Transmission Date: 20260118
  Serious: Yes (Other)
  Sender: MYLAN
  Company Number: EU-MYLANLABS-2025M1086917

PATIENT
  Age: 59 Year
  Sex: Female

DRUGS (36)
  1. MYCOPHENOLATE MOFETIL [Suspect]
     Active Substance: MYCOPHENOLATE MOFETIL
     Indication: Antisynthetase syndrome
     Dosage: 2 GRAM, QD
  2. MYCOPHENOLATE MOFETIL [Suspect]
     Active Substance: MYCOPHENOLATE MOFETIL
     Dosage: 2 GRAM, QD
     Route: 065
  3. MYCOPHENOLATE MOFETIL [Suspect]
     Active Substance: MYCOPHENOLATE MOFETIL
     Dosage: 2 GRAM, QD
     Route: 065
  4. MYCOPHENOLATE MOFETIL [Suspect]
     Active Substance: MYCOPHENOLATE MOFETIL
     Dosage: 2 GRAM, QD
  5. AZATHIOPRINE [Suspect]
     Active Substance: AZATHIOPRINE
     Indication: Antisynthetase syndrome
     Dosage: 100 MILLIGRAM, QD
  6. AZATHIOPRINE [Suspect]
     Active Substance: AZATHIOPRINE
     Dosage: 100 MILLIGRAM, QD
     Route: 065
  7. AZATHIOPRINE [Suspect]
     Active Substance: AZATHIOPRINE
     Dosage: 100 MILLIGRAM, QD
     Route: 065
  8. AZATHIOPRINE [Suspect]
     Active Substance: AZATHIOPRINE
     Dosage: 100 MILLIGRAM, QD
  9. METHOTREXATE [Suspect]
     Active Substance: METHOTREXATE
     Indication: Antisynthetase syndrome
     Dosage: 12.5 MILLIGRAM, QW
  10. METHOTREXATE [Suspect]
     Active Substance: METHOTREXATE
     Dosage: 12.5 MILLIGRAM, QW
  11. METHOTREXATE [Suspect]
     Active Substance: METHOTREXATE
     Dosage: 12.5 MILLIGRAM, QW
     Route: 065
  12. METHOTREXATE [Suspect]
     Active Substance: METHOTREXATE
     Dosage: 12.5 MILLIGRAM, QW
     Route: 065
  13. METHOTREXATE [Suspect]
     Active Substance: METHOTREXATE
     Dosage: 7.5 MILLIGRAM, QW
  14. METHOTREXATE [Suspect]
     Active Substance: METHOTREXATE
     Dosage: 7.5 MILLIGRAM, QW
  15. METHOTREXATE [Suspect]
     Active Substance: METHOTREXATE
     Dosage: 7.5 MILLIGRAM, QW
     Route: 065
  16. METHOTREXATE [Suspect]
     Active Substance: METHOTREXATE
     Dosage: 7.5 MILLIGRAM, QW
     Route: 065
  17. CYCLOPHOSPHAMIDE [Concomitant]
     Active Substance: CYCLOPHOSPHAMIDE
     Indication: Antisynthetase syndrome
     Dosage: 500 MILLIGRAM, QD; OVER 3 MONTHS
  18. CYCLOPHOSPHAMIDE [Concomitant]
     Active Substance: CYCLOPHOSPHAMIDE
     Dosage: 500 MILLIGRAM, QD; OVER 3 MONTHS
     Route: 065
  19. CYCLOPHOSPHAMIDE [Concomitant]
     Active Substance: CYCLOPHOSPHAMIDE
     Dosage: 500 MILLIGRAM, QD; OVER 3 MONTHS
     Route: 065
  20. CYCLOPHOSPHAMIDE [Concomitant]
     Active Substance: CYCLOPHOSPHAMIDE
     Dosage: 500 MILLIGRAM, QD; OVER 3 MONTHS
  21. RITUXIMAB [Concomitant]
     Active Substance: RITUXIMAB
     Indication: Antisynthetase syndrome
     Dosage: 1 GRAM; 2 ? 1 G
  22. RITUXIMAB [Concomitant]
     Active Substance: RITUXIMAB
     Dosage: 1 GRAM; 2 ? 1 G
     Route: 065
  23. RITUXIMAB [Concomitant]
     Active Substance: RITUXIMAB
     Dosage: 1 GRAM; 2 ? 1 G
     Route: 065
  24. RITUXIMAB [Concomitant]
     Active Substance: RITUXIMAB
     Dosage: 1 GRAM; 2 ? 1 G
  25. METHYLPREDNISOLONE [Concomitant]
     Active Substance: METHYLPREDNISOLONE
     Indication: Antisynthetase syndrome
     Dosage: 250 MILLIGRAM
  26. METHYLPREDNISOLONE [Concomitant]
     Active Substance: METHYLPREDNISOLONE
     Dosage: 250 MILLIGRAM
     Route: 065
  27. METHYLPREDNISOLONE [Concomitant]
     Active Substance: METHYLPREDNISOLONE
     Dosage: 250 MILLIGRAM
     Route: 065
  28. METHYLPREDNISOLONE [Concomitant]
     Active Substance: METHYLPREDNISOLONE
     Dosage: 250 MILLIGRAM
  29. PREDNISONE [Concomitant]
     Active Substance: PREDNISONE
     Indication: Antisynthetase syndrome
     Dosage: UNK; CUMULATIVE ANNUAL DOSE OF 740MG/YEAR-5040MG/YEAR
  30. PREDNISONE [Concomitant]
     Active Substance: PREDNISONE
     Dosage: UNK; CUMULATIVE ANNUAL DOSE OF 740MG/YEAR-5040MG/YEAR
  31. PREDNISONE [Concomitant]
     Active Substance: PREDNISONE
     Dosage: UNK; CUMULATIVE ANNUAL DOSE OF 740MG/YEAR-5040MG/YEAR
     Route: 065
  32. PREDNISONE [Concomitant]
     Active Substance: PREDNISONE
     Dosage: UNK; CUMULATIVE ANNUAL DOSE OF 740MG/YEAR-5040MG/YEAR
     Route: 065
  33. PREDNISONE [Concomitant]
     Active Substance: PREDNISONE
     Dosage: 4 MILLIGRAM, QD; TAPERED
  34. PREDNISONE [Concomitant]
     Active Substance: PREDNISONE
     Dosage: 4 MILLIGRAM, QD; TAPERED
  35. PREDNISONE [Concomitant]
     Active Substance: PREDNISONE
     Dosage: 4 MILLIGRAM, QD; TAPERED
     Route: 065
  36. PREDNISONE [Concomitant]
     Active Substance: PREDNISONE
     Dosage: 4 MILLIGRAM, QD; TAPERED
     Route: 065

REACTIONS (3)
  - Drug ineffective for unapproved indication [Unknown]
  - Off label use [Unknown]
  - Gastrointestinal disorder [Unknown]
